FAERS Safety Report 7643291-6 (Version None)
Quarter: 2011Q3

REPORT INFORMATION
  Report Type: 
  Country: None (occurrence: None)
  Receive Date: 20110729
  Receipt Date: 20110720
  Transmission Date: 20111222
  Serious: No
  Sender: FDA-Public Use
  Company Number: US-BIOGENIDEC-2011BI027145

PATIENT
  Sex: Female

DRUGS (2)
  1. ZOLOFT [Concomitant]
     Indication: STRESS
     Dates: start: 20060101
  2. TYSABRI [Suspect]
     Indication: MULTIPLE SCLEROSIS
     Route: 042
     Dates: start: 20100607

REACTIONS (6)
  - DYSSTASIA [None]
  - LOSS OF CONTROL OF LEGS [None]
  - HEADACHE [None]
  - BALANCE DISORDER [None]
  - TEMPERATURE INTOLERANCE [None]
  - FALL [None]
